FAERS Safety Report 4630620-0 (Version None)
Quarter: 2005Q2

REPORT INFORMATION
  Report Type: 
  Country: None (occurrence: None)
  Receive Date: 20050408
  Receipt Date: 20050307
  Transmission Date: 20051028
  Serious: Yes (Death)
  Sender: FDA-Public Use
  Company Number: US-BRISTOL-MYERS SQUIBB COMPANY-12890109

PATIENT
  Age: 47 Year
  Sex: Male

DRUGS (6)
  1. PLATINOL-AQ [Suspect]
     Indication: OESOPHAGEAL CARCINOMA
     Route: 042
     Dates: start: 20050228, end: 20050305
  2. RADIATION THERAPY [Concomitant]
  3. CAMPTOSAR [Concomitant]
     Dates: start: 20050228, end: 20050305
  4. DURAGESIC-100 [Concomitant]
  5. MORPHINE [Concomitant]
     Route: 042
  6. PREVACID [Concomitant]

REACTIONS (2)
  - MALIGNANT NEOPLASM PROGRESSION [None]
  - OESOPHAGEAL CARCINOMA [None]
